FAERS Safety Report 21501206 (Version 1)
Quarter: 2022Q4

REPORT INFORMATION
  Report Type: Spontaneous
  Country: US (occurrence: US)
  Receive Date: 20221025
  Receipt Date: 20221025
  Transmission Date: 20230112
  Serious: No
  Sender: FDA-Public Use
  Company Number: US-APOTEX-2022AP013112

PATIENT
  Sex: Female

DRUGS (3)
  1. PREGABALIN [Suspect]
     Active Substance: PREGABALIN
     Indication: Neuropathy peripheral
     Dosage: UNK, BID, FIRST DOSE TAKEN AT 10 AM AND SECOND DOSE WAS TAKEN AT 7 PM
     Route: 065
     Dates: start: 20220910
  2. PREGABALIN [Suspect]
     Active Substance: PREGABALIN
     Dosage: 75 MILLIGRAM
     Route: 065
     Dates: start: 20220911
  3. PREGABALIN [Suspect]
     Active Substance: PREGABALIN
     Dosage: 2 DOSAGE FORM
     Route: 065
     Dates: start: 20220912

REACTIONS (9)
  - Gait disturbance [Unknown]
  - Discomfort [Unknown]
  - Pain in extremity [Unknown]
  - Movement disorder [Unknown]
  - Fall [Unknown]
  - Hypoaesthesia [Unknown]
  - Muscle spasms [Unknown]
  - Insomnia [Unknown]
  - Drug ineffective [Unknown]

NARRATIVE: CASE EVENT DATE: 20220901
